FAERS Safety Report 23967742 (Version 2)
Quarter: 2024Q3

REPORT INFORMATION
  Report Type: Spontaneous
  Country: GB (occurrence: GB)
  Receive Date: 20240612
  Receipt Date: 20240826
  Transmission Date: 20241017
  Serious: Yes (Other)
  Sender: MYLAN
  Company Number: GB-MYLANLABS-2024M1043287

PATIENT
  Sex: Male
  Weight: 178 kg

DRUGS (8)
  1. CLOZARIL [Suspect]
     Active Substance: CLOZAPINE
     Indication: Schizophrenia
     Dosage: 225 MILLIGRAM, QD
     Route: 048
     Dates: start: 20220307, end: 20240504
  2. PROPRANOLOL [Concomitant]
     Active Substance: PROPRANOLOL HYDROCHLORIDE
     Indication: Anxiety
     Dosage: 40 MILLIGRAM, BID
     Route: 065
     Dates: start: 2016
  3. FLUOXETINE [Concomitant]
     Active Substance: FLUOXETINE HYDROCHLORIDE
     Indication: Anxiety
     Dosage: 60 MILLIGRAM, QD
     Route: 065
     Dates: start: 202103
  4. PROMETHAZINE [Concomitant]
     Active Substance: PROMETHAZINE HYDROCHLORIDE
     Indication: Agitation
     Dosage: 25 MILLIGRAM, PRN
     Route: 065
     Dates: start: 202009
  5. LITHIUM [Concomitant]
     Active Substance: LITHIUM
     Indication: Affect lability
     Dosage: 1100 MILLIGRAM, QD
     Route: 065
     Dates: start: 201806
  6. LITHIUM [Concomitant]
     Active Substance: LITHIUM
     Dosage: 1200 MILLIGRAM
     Route: 065
  7. DIAZEPAM [Concomitant]
     Active Substance: DIAZEPAM
     Dosage: 2 MILLIGRAM, TID
     Route: 065
  8. RISPERIDONE [Concomitant]
     Active Substance: RISPERIDONE
     Dosage: 7 MILLIGRAM, QD
     Route: 065

REACTIONS (8)
  - Hallucination, auditory [Unknown]
  - Obesity [Not Recovered/Not Resolved]
  - Anxiety [Not Recovered/Not Resolved]
  - Paranoia [Unknown]
  - Malaise [Unknown]
  - Fatigue [Recovered/Resolved]
  - Constipation [Recovering/Resolving]
  - Sedation [Unknown]

NARRATIVE: CASE EVENT DATE: 20220101
